FAERS Safety Report 10005447 (Version 3)
Quarter: 2014Q4

REPORT INFORMATION
  Report Type: Report from Study
  Country: FR (occurrence: FR)
  Receive Date: 20140312
  Receipt Date: 20141021
  Transmission Date: 20150528
  Serious: Yes (Hospitalization)
  Sender: FDA-Public Use
  Company Number: PHHO2014FR002789

PATIENT
  Age: 19 Year
  Sex: Male
  Weight: 55 kg

DRUGS (27)
  1. AMOXICILLIN + CLAVULANIC ACID [Concomitant]
     Active Substance: AMOXICILLIN\CLAVULANIC ACID
     Dosage: 1G/200 MG (1G EVERY 8 HOURS)
     Route: 065
     Dates: start: 20140210
  2. GLYCEROL\PARAFFIN [Concomitant]
     Active Substance: GLYCERIN\PARAFFIN
     Dosage: TUBE 250G (1 APPLICATION DAILY)
     Route: 061
     Dates: start: 20140212
  3. KETOPROFEN. [Concomitant]
     Active Substance: KETOPROFEN
     Dosage: 100 MG 2ML
     Route: 042
     Dates: start: 20140215, end: 20140218
  4. SPASFON [Concomitant]
     Active Substance: PHLOROGLUCINOL
     Dosage: 4 ML, PRN 2 AMPULES IN MORNING, AT LUNCH, IN EVENING AND AT NIGHT
     Route: 065
     Dates: start: 20140207
  5. ACICLOVIR [Concomitant]
     Active Substance: ACYCLOVIR
     Dosage: 500 MG, Q8H
     Route: 042
     Dates: start: 20140210
  6. PHOCYTAN [Concomitant]
     Active Substance: .ALPHA.-GLUCOSE-1-PHOSPHATE
     Dosage: 0.66 MMOL/ML, 10 ML (1 AMPULE OVER 24 HOURS)
     Dates: start: 20140214
  7. TOPALGIC [Concomitant]
     Active Substance: TRAMADOL
     Dosage: 100 MG 2ML
     Route: 042
     Dates: start: 20140204, end: 20140206
  8. METHOTREXATE [Concomitant]
     Active Substance: METHOTREXATE
     Dosage: 20500 MG,(CUMALATIVE DOSE 51000 MG)
     Route: 042
     Dates: start: 20131030, end: 20140208
  9. XYLOCAINE VISCOUS [Concomitant]
     Active Substance: LIDOCAINE HYDROCHLORIDE
     Dosage: 1 DOSE EVERY 8 HOURS (ORAL ROUTE/LOCAL APPLICATION )
     Route: 061
     Dates: start: 20140210
  10. FUNGIZONE [Concomitant]
     Active Substance: AMPHOTERICIN B
     Dosage: 40 ML, (1 DOSE EVERY 8 HOURS)
     Route: 048
     Dates: start: 20140210
  11. CALCIUM + D3 [Concomitant]
     Active Substance: CALCIUM\CHOLECALCIFEROL
     Dosage: 500 MG/400 IU (2 SACHETS)
     Route: 048
     Dates: start: 20140205
  12. ISOTONIC [Concomitant]
     Dosage: 1500 ML, (500 ML IN THE MORNING, 1000 ML IN THE AFTERNOON)
     Route: 042
     Dates: start: 20140210
  13. PRIMPERAN [Concomitant]
     Active Substance: METOCLOPRAMIDE HYDROCHLORIDE
     Dosage: 2 DF (AMPULES), 10 MG/2 ML EVERY 8 HOURS (IF NEEDED) PRN
     Route: 042
     Dates: start: 20140209
  14. PARACETAMOL [Concomitant]
     Active Substance: ACETAMINOPHEN
     Dosage: 1G/100 ML (1000 MG IN MORNING, 1000 MG AT LUNCH, 1000 MG IN EVENING)
     Route: 042
     Dates: start: 20140207
  15. ASPEGIC [Concomitant]
     Active Substance: ASPIRIN DL-LYSINE
     Dosage: 300 MG, UNK
     Route: 042
     Dates: start: 20140218, end: 20140218
  16. FOLINATE DE CALCIUM AGUETTANT [Concomitant]
     Indication: PROPHYLAXIS
     Dosage: UNK
     Route: 042
     Dates: start: 20140130, end: 20140206
  17. RED BLOOD CELLS [Concomitant]
     Active Substance: HUMAN RED BLOOD CELL
     Indication: APLASTIC ANAEMIA
     Dosage: UNK
     Route: 042
     Dates: start: 20140216, end: 20140216
  18. SOLU-MEDROL [Concomitant]
     Active Substance: METHYLPREDNISOLONE SODIUM SUCCINATE
     Dosage: 40 MG, UNK
     Route: 065
  19. ZOLEDRONATE [Suspect]
     Active Substance: ZOLEDRONIC ACID
     Indication: OSTEOSARCOMA
     Dosage: 3 MG, UNK
     Route: 042
     Dates: start: 20140201
  20. MOVICOL [Concomitant]
     Active Substance: POLYETHYLENE GLYCOL 3350\POTASSIUM CHLORIDE\SODIUM BICARBONATE\SODIUM CHLORIDE
     Dosage: 2 DF, PRN (2 SACHETS)
     Dates: start: 20140210
  21. HYPERTONIC [Concomitant]
     Dosage: 4.5 MG, (1.5G IN THE MORNING, 3G IN THE AFTERNOON)
     Route: 065
     Dates: start: 20140210
  22. CIFLOX [Concomitant]
     Active Substance: CIPROFLOXACIN
     Dosage: 200 MG/100 ML, Q12H
     Route: 042
     Dates: start: 20140210
  23. OXYNORM [Concomitant]
     Active Substance: OXYCODONE HYDROCHLORIDE
     Dosage: 20 MG/2 ML (80 MG OVER 24 HOURS)
     Route: 042
     Dates: start: 20140210
  24. SODIUM BICARBONATE. [Concomitant]
     Active Substance: SODIUM BICARBONATE
     Dosage: 1 APPLICATION AT 08:00 AM, 1 APPLICATION AT 12:00, 1 APPLICATION IN THE EVENING
     Route: 061
     Dates: start: 20140208
  25. ACUPAN [Concomitant]
     Active Substance: NEFOPAM HYDROCHLORIDE
     Dosage: 20 MG, (2 ML SOLUTION)
     Route: 065
     Dates: start: 20140210
  26. NIVESTIM [Concomitant]
     Active Substance: FILGRASTIM
     Dosage: 30 MU/0.5 ML
     Route: 042
     Dates: start: 20140210
  27. KETOPROFEN. [Concomitant]
     Active Substance: KETOPROFEN
     Dosage: 100 MG 2ML
     Route: 042
     Dates: start: 20140211, end: 20140213

REACTIONS (3)
  - Bone marrow failure [Recovered/Resolved]
  - Ischaemic stroke [Recovered/Resolved]
  - Thrombocytopenia [Recovered/Resolved]

NARRATIVE: CASE EVENT DATE: 20140208
